FAERS Safety Report 8966835 (Version 2)
Quarter: 2014Q2

REPORT INFORMATION
  Report Type: Spontaneous
  Country: US (occurrence: US)
  Receive Date: 20121217
  Receipt Date: 20131018
  Transmission Date: 20141212
  Serious: Yes (Other)
  Sender: FDA-Public Use
  Company Number: US-PFIZER INC-2012316663

PATIENT
  Sex: Male

DRUGS (3)
  1. MORPHINE SULFATE [Suspect]
     Dosage: 60 MG, DAILY
  2. OXYCODONE HYDROCHLORIDE [Suspect]
     Dosage: 180 MG DAILY (6 TABLETS OF 30 MG DAILY)
  3. OXYCONTIN [Suspect]
     Dosage: 160 MG (2 TABLETS OF 80 MG DAILY)

REACTIONS (7)
  - Suicidal ideation [Unknown]
  - Sciatica [Not Recovered/Not Resolved]
  - Diarrhoea [Unknown]
  - Muscle spasms [Unknown]
  - Dizziness [Unknown]
  - Decreased appetite [Unknown]
  - Pain [Unknown]
